FAERS Safety Report 6866112-8 (Version None)
Quarter: 2010Q2

REPORT INFORMATION
  Report Type: 
  Country: None (occurrence: None)
  Receive Date: 20100601
  Receipt Date: 20090101
  Transmission Date: 20101027
  Serious: No
  Sender: FDA-Public Use
  Company Number: 2009-01026

PATIENT
  Sex: Female

DRUGS (1)
  1. ZICAM COLD REMEDY ORAL MIST [Suspect]
     Dosage: 6 DOSES X 2 DAYS
     Dates: start: 20081231, end: 20090101

REACTIONS (2)
  - AGEUSIA [None]
  - ANOSMIA [None]
